FAERS Safety Report 13515321 (Version 3)
Quarter: 2017Q2

REPORT INFORMATION
  Report Type: Spontaneous
  Country: CH (occurrence: CH)
  Receive Date: 20170504
  Receipt Date: 20170612
  Transmission Date: 20170830
  Serious: Yes (Other)
  Sender: FDA-Public Use
  Company Number: CH-PFIZER INC-2017174921

PATIENT
  Age: 57 Year
  Sex: Female
  Weight: 62 kg

DRUGS (2)
  1. SYMBICORT [Concomitant]
     Active Substance: BUDESONIDE\FORMOTEROL FUMARATE DIHYDRATE
     Indication: ASTHMA
     Dosage: 1 DF, 1X/DAY (1 PUFF AT NIGHT)
     Dates: start: 1997
  2. EUCRISA [Suspect]
     Active Substance: CRISABOROLE
     Indication: NEURODERMATITIS
     Dosage: 2%, 2X/DAY
     Route: 061
     Dates: start: 20170408, end: 201705

REACTIONS (14)
  - Neurodermatitis [Recovering/Resolving]
  - Lymphadenopathy [Not Recovered/Not Resolved]
  - Urticaria [Unknown]
  - Malaise [Unknown]
  - Condition aggravated [Unknown]
  - Oral herpes [Recovering/Resolving]
  - Scab [Unknown]
  - Eczema [Unknown]
  - Disease recurrence [Recovering/Resolving]
  - Streptococcal infection [Recovering/Resolving]
  - Dermatitis contact [Unknown]
  - Staphylococcal skin infection [Recovering/Resolving]
  - Application site pain [Not Recovered/Not Resolved]
  - Immunosuppression [Unknown]

NARRATIVE: CASE EVENT DATE: 201704
